FAERS Safety Report 15428946 (Version 2)
Quarter: 2018Q4

REPORT INFORMATION
  Report Type: Spontaneous
  Country: CA (occurrence: CA)
  Receive Date: 20180926
  Receipt Date: 20181004
  Transmission Date: 20190204
  Serious: Yes (Other)
  Sender: FDA-Public Use
  Company Number: CA-CELLTRION INC.-2018CA022399

PATIENT

DRUGS (5)
  1. INFLECTRA [Suspect]
     Active Substance: INFLIXIMAB-DYYB
     Indication: CROHN^S DISEASE
     Dosage: 450 MG, UNK (Q 0, 2, 6WEEKS, THEN EVERY 8 WEEKS)
     Route: 042
     Dates: start: 20180822
  2. INFLECTRA [Suspect]
     Active Substance: INFLIXIMAB-DYYB
     Dosage: 450 MG, UNK (Q 0, 2, 6WEEKS, THEN EVERY 8 WEEKS)
     Route: 042
     Dates: start: 20180822
  3. IMURAN [Concomitant]
     Active Substance: AZATHIOPRINE
     Dosage: 150MG
  4. INFLECTRA [Suspect]
     Active Substance: INFLIXIMAB-DYYB
     Dosage: 450 MG, UNK (Q 0, 2, 6WEEKS, THEN EVERY 8 WEEKS)
     Route: 042
     Dates: start: 20180913, end: 20180913
  5. AZATHIOPRINE. [Concomitant]
     Active Substance: AZATHIOPRINE
     Dosage: UNK

REACTIONS (24)
  - Heart rate increased [Unknown]
  - Vomiting [Unknown]
  - Inappropriate schedule of product administration [Unknown]
  - Dizziness [Unknown]
  - Pharyngeal oedema [Unknown]
  - Gait disturbance [Unknown]
  - Arthralgia [Unknown]
  - Electrocardiogram T wave abnormal [Unknown]
  - Arthralgia [Unknown]
  - Dyspnoea [Unknown]
  - Hypotension [Unknown]
  - Pharyngitis [Unknown]
  - Pyrexia [Not Recovered/Not Resolved]
  - Chest pain [Unknown]
  - Blood pressure fluctuation [Unknown]
  - Nausea [Unknown]
  - Pallor [Unknown]
  - Drug hypersensitivity [Unknown]
  - Chills [Unknown]
  - Cough [Unknown]
  - Ear swelling [Unknown]
  - Tremor [Unknown]
  - Oropharyngeal pain [Unknown]
  - Rash [Not Recovered/Not Resolved]

NARRATIVE: CASE EVENT DATE: 20180828
